FAERS Safety Report 19775469 (Version 2)
Quarter: 2022Q3

REPORT INFORMATION
  Report Type: Spontaneous
  Country: DE (occurrence: DE)
  Receive Date: 20210902
  Receipt Date: 20220723
  Transmission Date: 20221027
  Serious: Yes (Life-Threatening, Hospitalization)
  Sender: FDA-Public Use
  Company Number: DE-EMA-DD-20210824-KUMARVN_P-145451

PATIENT
  Age: 72 Year
  Sex: Male

DRUGS (8)
  1. OXALIPLATIN [Suspect]
     Active Substance: OXALIPLATIN
     Indication: HER2 positive gastric cancer
     Dates: start: 20160630, end: 20161212
  2. OXALIPLATIN [Suspect]
     Active Substance: OXALIPLATIN
     Route: 048
     Dates: start: 20160721
  3. CAPECITABINE [Suspect]
     Active Substance: CAPECITABINE
     Indication: HER2 positive gastric cancer
     Dosage: DATE OF MOST RECENT DOSE (4400 MG)PRIOR TO SAE: 04/AUG/2016 D1-14 IN 3 WEEKLY SCHEDULE
     Dates: start: 20160608, end: 20161212
  4. CAPECITABINE [Suspect]
     Active Substance: CAPECITABINE
     Dosage: DATE OF MOST RECENT DOSE (4400 MG)PRIOR TO SAE: 04/AUG/2016 D1-14 IN 3 WEEKLY SCHEDULE
     Dates: start: 20160804
  5. TRASTUZUMAB [Suspect]
     Active Substance: TRASTUZUMAB
     Indication: HER2 positive gastric cancer
     Dosage: DATE OF MOST RECENT DOSE (636 MG) PRIOR TO SAE: 21/JUL/2016 D1 IN 3 WEEKLY SCHEDULE
     Route: 042
     Dates: start: 20160608, end: 20161212
  6. TRASTUZUMAB [Suspect]
     Active Substance: TRASTUZUMAB
     Dosage: DATE OF MOST RECENT DOSE (636 MG) PRIOR TO SAE: 21/JUL/2016 D1 IN 3 WEEKLY SCHEDULE
     Route: 042
     Dates: start: 20160721
  7. CISPLATIN [Suspect]
     Active Substance: CISPLATIN
     Indication: HER2 positive gastric cancer
     Dosage: DATE OF MOST RECENT DOSE (176 MG)PRIOR TO SAE: 08/JUN/2016 D1 IN 3 WEEKLY SCHEDULE
     Route: 042
     Dates: start: 20160608, end: 20160630
  8. CISPLATIN [Suspect]
     Active Substance: CISPLATIN
     Dosage: DATE OF MOST RECENT DOSE (176 MG)PRIOR TO SAE: 08/JUN/2016 D1 IN 3 WEEKLY SCHEDULE
     Route: 042
     Dates: start: 20160608

REACTIONS (2)
  - Anastomotic complication [Recovered/Resolved]
  - Sepsis [Recovered/Resolved with Sequelae]

NARRATIVE: CASE EVENT DATE: 20160917
